FAERS Safety Report 16276724 (Version 1)
Quarter: 2019Q2

REPORT INFORMATION
  Report Type: Spontaneous
  Country: MX (occurrence: MX)
  Receive Date: 20190506
  Receipt Date: 20190506
  Transmission Date: 20190711
  Serious: No
  Sender: FDA-Public Use
  Company Number: MX-US WORLDMEDS, LLC-USW201904-000852

PATIENT
  Age: 38 Year
  Sex: Female

DRUGS (2)
  1. TEGASEROD [Suspect]
     Active Substance: TEGASEROD
     Indication: IRRITABLE BOWEL SYNDROME
     Route: 048
     Dates: start: 20190323, end: 20190401
  2. TEGASEROD [Suspect]
     Active Substance: TEGASEROD
     Dates: end: 20190401

REACTIONS (1)
  - Oesophageal pain [Recovered/Resolved]

NARRATIVE: CASE EVENT DATE: 20190323
